FAERS Safety Report 9526060 (Version 1)
Quarter: 2013Q3

REPORT INFORMATION
  Report Type: Spontaneous
  Country: ES (occurrence: ES)
  Receive Date: 20130916
  Receipt Date: 20130916
  Transmission Date: 20140515
  Serious: Yes (Life-Threatening, Hospitalization, Other)
  Sender: FDA-Public Use
  Company Number: ES-ABBVIE-13P-144-1147698-00

PATIENT
  Age: 26 Year
  Sex: Female

DRUGS (7)
  1. HUMIRA [Suspect]
     Indication: PSORIASIS
     Route: 058
     Dates: start: 20130707, end: 201309
  2. SERTRALINE [Concomitant]
     Indication: DEPRESSION
  3. NEURONTIN [Concomitant]
     Indication: FIBROMYALGIA
  4. MIRTAZAPINA [Concomitant]
     Indication: PRODUCT USED FOR UNKNOWN INDICATION
  5. DOGMATIL [Concomitant]
     Indication: PRODUCT USED FOR UNKNOWN INDICATION
  6. RIVOTRIL [Concomitant]
     Indication: PRODUCT USED FOR UNKNOWN INDICATION
  7. PARACETAMOL [Concomitant]
     Indication: PRODUCT USED FOR UNKNOWN INDICATION

REACTIONS (4)
  - Hypotension [Recovered/Resolved]
  - Sepsis [Recovered/Resolved]
  - Pyelonephritis [Recovering/Resolving]
  - Renal cyst [Unknown]
